FAERS Safety Report 22186908 (Version 1)
Quarter: 2023Q2

REPORT INFORMATION
  Report Type: Report from Study
  Country: MX (occurrence: MX)
  Receive Date: 20230407
  Receipt Date: 20230407
  Transmission Date: 20230721
  Serious: Yes (Other)
  Sender: FDA-Public Use
  Company Number: MX-AstraZeneca-2022A363578

PATIENT
  Age: 188 Day
  Sex: Male
  Weight: 8 kg

DRUGS (4)
  1. SYNAGIS [Suspect]
     Active Substance: PALIVIZUMAB
     Indication: Premature baby
     Dosage: 0.9ML UNKNOWN
     Route: 030
     Dates: start: 20220922
  2. SYNAGIS [Suspect]
     Active Substance: PALIVIZUMAB
     Dosage: 1.0ML UNKNOWN, ONCE A MONTH
     Route: 030
     Dates: start: 20221027
  3. SYNAGIS [Suspect]
     Active Substance: PALIVIZUMAB
     Dosage: 100.0MG UNKNOWN, ONCE A MONTH
     Route: 030
     Dates: start: 20221202, end: 20221202
  4. SYNAGIS [Suspect]
     Active Substance: PALIVIZUMAB
     Dosage: 120.0MG UNKNOWN, ONCE A MONTH
     Route: 030
     Dates: start: 20230113, end: 20230113

REACTIONS (8)
  - Pneumonitis [Recovered/Resolved]
  - Pneumonia [Recovered/Resolved]
  - Oxygen saturation decreased [Recovered/Resolved]
  - Crying [Unknown]
  - Somnolence [Unknown]
  - Mucosal disorder [Unknown]
  - Pyrexia [Recovered/Resolved]
  - COVID-19 [Recovered/Resolved]

NARRATIVE: CASE EVENT DATE: 20221027
